FAERS Safety Report 5122726-7 (Version None)
Quarter: 2006Q4

REPORT INFORMATION
  Report Type: 
  Country: None (occurrence: None)
  Receive Date: 20061009
  Receipt Date: 20060926
  Transmission Date: 20070319
  Serious: Yes (Hospitalization)
  Sender: FDA-Public Use
  Company Number: US-AMGEN-US194974

PATIENT
  Sex: Female

DRUGS (3)
  1. ENBREL [Suspect]
     Indication: RHEUMATOID ARTHRITIS
     Route: 058
     Dates: start: 20030901
  2. METHOTREXATE [Concomitant]
     Route: 048
     Dates: start: 20020101
  3. PLAQUENIL [Concomitant]
     Route: 048
     Dates: start: 20020101

REACTIONS (4)
  - EPIDURAL ANAESTHESIA [None]
  - SKIN CANCER [None]
  - SPINAL FRACTURE [None]
  - VERTEBROPLASTY [None]
